FAERS Safety Report 18048848 (Version 1)
Quarter: 2020Q3

REPORT INFORMATION
  Report Type: Spontaneous
  Country: CA (occurrence: CA)
  Receive Date: 20200721
  Receipt Date: 20200721
  Transmission Date: 20201103
  Serious: Yes (Other)
  Sender: FDA-Public Use
  Company Number: CA-ACCORD-191353

PATIENT
  Age: 65 Year
  Sex: Male

DRUGS (2)
  1. METHOTREXATE. [Suspect]
     Active Substance: METHOTREXATE
     Indication: PRODUCT USED FOR UNKNOWN INDICATION
     Dosage: 1 EVERY 1 WEEKS
     Route: 048
  2. SIMPONI [Concomitant]
     Active Substance: GOLIMUMAB
     Route: 058

REACTIONS (9)
  - C-reactive protein increased [Unknown]
  - Large intestine polyp [Unknown]
  - Musculoskeletal stiffness [Unknown]
  - Cough [Unknown]
  - Haemorrhoids [Unknown]
  - Malaise [Unknown]
  - Nasopharyngitis [Unknown]
  - Diverticulum intestinal [Unknown]
  - Pain [Unknown]
